FAERS Safety Report 22158143 (Version 1)
Quarter: 2023Q1

REPORT INFORMATION
  Report Type: Spontaneous
  Country: US (occurrence: US)
  Receive Date: 20230330
  Receipt Date: 20230330
  Transmission Date: 20230417
  Serious: No
  Sender: FDA-Public Use
  Company Number: US-ALKERMES INC.-ALK-2023-001360

PATIENT
  Sex: Male

DRUGS (3)
  1. VIVITROL [Suspect]
     Active Substance: NALTREXONE
     Indication: Dependence
     Dosage: 380 MILLIGRAM, QMO
     Route: 030
     Dates: start: 202211
  2. SPRAVATO [Concomitant]
     Active Substance: ESKETAMINE
     Indication: Major depression
     Dosage: 84 MILLIGRAM
     Route: 065
  3. SPRAVATO [Concomitant]
     Active Substance: ESKETAMINE
     Indication: Alcoholism

REACTIONS (2)
  - Off label use [Unknown]
  - Malaise [Unknown]
